FAERS Safety Report 16990547 (Version 2)
Quarter: 2019Q4

REPORT INFORMATION
  Report Type: Spontaneous
  Country: JP (occurrence: JP)
  Receive Date: 20191104
  Receipt Date: 20191207
  Transmission Date: 20200122
  Serious: Yes (Hospitalization, Other)
  Sender: FDA-Public Use
  Company Number: JP-009507513-1906JPN002663J

PATIENT
  Age: 77 Year
  Sex: Male
  Weight: 50 kg

DRUGS (9)
  1. MAGMITT [Concomitant]
     Active Substance: MAGNESIUM OXIDE
     Dosage: UNK
     Route: 065
  2. SUJANU COMBINATION TABLETS [Suspect]
     Active Substance: IPRAGLIFLOZIN L-PROLINE\SITAGLIPTIN PHOSPHATE
     Dosage: UNK UNK, QD
     Route: 048
     Dates: end: 20190619
  3. JANUVIA [Suspect]
     Active Substance: SITAGLIPTIN PHOSPHATE
     Dosage: 50 MILLIGRAM, QD
     Route: 048
     Dates: end: 20190619
  4. METGLUCO [Suspect]
     Active Substance: METFORMIN HYDROCHLORIDE
     Dosage: 500 MILLIGRAM, TID
     Route: 048
     Dates: end: 20190619
  5. FAMOTIDINE. [Concomitant]
     Active Substance: FAMOTIDINE
     Dosage: 10 MILLIGRAM, BID
     Route: 065
     Dates: end: 20190619
  6. VOGLIBOSE OD [Concomitant]
     Active Substance: VOGLIBOSE
     Dosage: UNK
     Route: 065
  7. SENNA [Concomitant]
     Active Substance: SENNA LEAF\SENNOSIDES\SENNOSIDES A AND B
     Dosage: UNK, BID
     Route: 065
     Dates: end: 20190619
  8. AMARYL [Suspect]
     Active Substance: GLIMEPIRIDE
     Dosage: 1 MILLIGRAM, QD
     Route: 065
     Dates: end: 20190619
  9. LYRICA [Concomitant]
     Active Substance: PREGABALIN
     Dosage: 75 MILLIGRAM, BID
     Route: 065
     Dates: end: 20190619

REACTIONS (5)
  - Blood ketone body increased [Recovered/Resolved]
  - Dehydration [Recovered/Resolved]
  - Diabetic ketoacidosis [Recovering/Resolving]
  - Pachymeningitis [Unknown]
  - Decreased appetite [Unknown]

NARRATIVE: CASE EVENT DATE: 20190619
